FAERS Safety Report 5627108-7 (Version None)
Quarter: 2008Q1

REPORT INFORMATION
  Report Type: 
  Country: None (occurrence: None)
  Receive Date: 20080129
  Receipt Date: 20070419
  Transmission Date: 20080703
  Serious: Yes (Other)
  Sender: FDA-Public Use
  Company Number: 8024979

PATIENT
  Age: 34 Year
  Sex: Female

DRUGS (11)
  1. KEPPRA [Suspect]
     Dosage: 500 MG PO
     Route: 048
     Dates: start: 20020620
  2. KEPPRA [Suspect]
     Dosage: 750 MG PO
     Route: 048
     Dates: start: 20020828
  3. TEGRETOL [Concomitant]
  4. LORAZEPAM [Concomitant]
  5. DIAZEPAM [Concomitant]
  6. PAXIL [Concomitant]
  7. NEURONTIN [Concomitant]
  8. DOXEPIN HCL [Concomitant]
  9. NECON [Concomitant]
  10. LAMICTAL [Concomitant]
  11. EFFEXOR [Concomitant]

REACTIONS (6)
  - CONSTIPATION [None]
  - CONVULSION [None]
  - DIZZINESS [None]
  - NAUSEA [None]
  - SUICIDE ATTEMPT [None]
  - VOMITING [None]
